FAERS Safety Report 12798384 (Version 1)
Quarter: 2016Q3

REPORT INFORMATION
  Report Type: Spontaneous
  Country: US (occurrence: US)
  Receive Date: 20160930
  Receipt Date: 20160930
  Transmission Date: 20161109
  Serious: Yes (Hospitalization, Disabling)
  Sender: FDA-Public Use
  Company Number: None

PATIENT
  Age: 20 Year
  Sex: Female
  Weight: 90.72 kg

DRUGS (1)
  1. IMPLANON [Suspect]
     Active Substance: ETONOGESTREL

REACTIONS (9)
  - Pain in extremity [None]
  - Depression [None]
  - Anxiety [None]
  - Gastric disorder [None]
  - Syncope [None]
  - Weight increased [None]
  - Headache [None]
  - Sensory disturbance [None]
  - Menorrhagia [None]

NARRATIVE: CASE EVENT DATE: 20160901
